FAERS Safety Report 6212308-8 (Version None)
Quarter: 2009Q2

REPORT INFORMATION
  Report Type: 
  Country: None (occurrence: None)
  Receive Date: 20090529
  Receipt Date: 20090513
  Transmission Date: 20091009
  Serious: Yes (Death, Hospitalization)
  Sender: FDA-Public Use
  Company Number: DAV-AE-ACY-09-001

PATIENT
  Age: 36 Month
  Sex: Male

DRUGS (4)
  1. ACYCLOVIR [Suspect]
     Indication: ENCEPHALITIS HERPES
     Dosage: 1500 G/M2
  2. PHENYTOIN [Concomitant]
  3. PHENOBARBITAL TAB [Concomitant]
  4. CARBAMAZEPINE [Concomitant]

REACTIONS (7)
  - CHOREOATHETOSIS [None]
  - CONVULSION [None]
  - DRUG RESISTANCE [None]
  - NO THERAPEUTIC RESPONSE [None]
  - PYREXIA [None]
  - RESPIRATORY FAILURE [None]
  - STATUS EPILEPTICUS [None]
